FAERS Safety Report 5598986-5 (Version None)
Quarter: 2008Q1

REPORT INFORMATION
  Report Type: 
  Country: None (occurrence: None)
  Receive Date: 20080122
  Receipt Date: 20071228
  Transmission Date: 20080703
  Serious: No
  Sender: FDA-Public Use
  Company Number: US-BOEHRINGER INGELHEIM PHARMACEUTICALS, INC.-2008-BP-00046BP

PATIENT
  Sex: Female

DRUGS (2)
  1. FLOMAX [Suspect]
     Indication: POLLAKIURIA
     Route: 048
     Dates: start: 20070301, end: 20071201
  2. SYNTHROID [Concomitant]

REACTIONS (1)
  - DYSPHONIA [None]
